FAERS Safety Report 9315296 (Version 2)
Quarter: 2013Q3

REPORT INFORMATION
  Report Type: Spontaneous
  Country: GB (occurrence: GB)
  Receive Date: 20130529
  Receipt Date: 20130827
  Transmission Date: 20140515
  Serious: No
  Sender: FDA-Public Use
  Company Number: GB-PFIZER INC-2013163858

PATIENT
  Age: 56 Year
  Sex: Female
  Weight: 63 kg

DRUGS (5)
  1. LYRICA [Suspect]
     Indication: PAIN
     Dosage: 200 MG, 2X/DAY
     Route: 048
     Dates: start: 20080127, end: 20130122
  2. OMEPRAZOLE [Concomitant]
     Indication: DYSPEPSIA
     Dosage: 20 MG, 1X/DAY
     Route: 048
     Dates: start: 1998
  3. LISINOPRIL [Concomitant]
     Dosage: 5 MG, 1X/DAY
     Route: 048
     Dates: start: 2010
  4. SERETIDE [Concomitant]
     Dosage: UNK
     Route: 055
     Dates: start: 2006
  5. HYDROXYCHLOROQUINE [Concomitant]
     Dosage: 200 MG, 2X/DAY
     Route: 048
     Dates: start: 2006

REACTIONS (2)
  - Condition aggravated [Unknown]
  - Sensory disturbance [Not Recovered/Not Resolved]
